FAERS Safety Report 23571307 (Version 3)
Quarter: 2024Q1

REPORT INFORMATION
  Report Type: Spontaneous
  Country: US (occurrence: US)
  Receive Date: 20240227
  Receipt Date: 20240321
  Transmission Date: 20240409
  Serious: No
  Sender: FDA-Public Use
  Company Number: US-PFIZER INC-202300227756

PATIENT
  Age: 71 Year
  Sex: Female
  Weight: 82.1 kg

DRUGS (2)
  1. IBRANCE [Suspect]
     Active Substance: PALBOCICLIB
     Indication: Breast cancer metastatic
     Dosage: ONE TABLET DAILY FOR THREE WEEKS ON AND ONE WEEK OFF
     Route: 048
     Dates: start: 202301
  2. IBRANCE [Suspect]
     Active Substance: PALBOCICLIB
     Indication: Breast cancer female
     Dosage: TAKE 1 TABLET BY MOUTH EVERY MORNING TIMES 21 DAYS, THEN ONE WEEK OFF
     Route: 048
     Dates: start: 20230103

REACTIONS (2)
  - Memory impairment [Not Recovered/Not Resolved]
  - Product dose omission in error [Unknown]

NARRATIVE: CASE EVENT DATE: 20230101
